FAERS Safety Report 6847727-X (Version None)
Quarter: 2010Q3

REPORT INFORMATION
  Report Type: 
  Country: None (occurrence: None)
  Receive Date: 20100716
  Receipt Date: 20100708
  Transmission Date: 20110219
  Serious: Yes (Hospitalization)
  Sender: FDA-Public Use
  Company Number: JP-MILLENNIUM PHARMACEUTICALS, INC.-2010-03437

PATIENT

DRUGS (11)
  1. VELCADE [Suspect]
     Indication: MULTIPLE MYELOMA
     Dosage: 1.8 MG, UNK
     Route: 042
     Dates: start: 20100608, end: 20100629
  2. MEYLON [Concomitant]
     Dosage: 20 ML, UNK
     Route: 042
     Dates: start: 20100609, end: 20100630
  3. LASIX [Concomitant]
     Indication: WEIGHT INCREASED
     Dosage: 40 MG, UNK
     Route: 042
     Dates: start: 20100619, end: 20100705
  4. LASIX [Concomitant]
     Dosage: 20 UNK, UNK
     Route: 048
     Dates: end: 20100709
  5. OMEPRAL                            /00661201/ [Concomitant]
     Dosage: 10 MG, UNK
     Route: 048
  6. MICARDIS [Concomitant]
     Dosage: 20 MG, UNK
     Route: 048
  7. ALOSITOL [Concomitant]
     Dosage: 200 MG, UNK
     Route: 048
     Dates: end: 20100708
  8. ZOVIRAX                            /00587301/ [Concomitant]
     Dosage: 200 MG, UNK
     Route: 048
     Dates: end: 20100709
  9. LENDORMIN [Concomitant]
     Dosage: 0.125 MG, UNK
     Route: 048
  10. BIOFERMIN R [Concomitant]
     Dosage: 9 DF, UNK
     Route: 048
  11. BORRAZA-G [Concomitant]
     Dosage: 9.6 G, UNK
     Route: 061
     Dates: end: 20100707

REACTIONS (3)
  - ALTERED STATE OF CONSCIOUSNESS [None]
  - HYPOXIA [None]
  - LUNG DISORDER [None]
